FAERS Safety Report 18782995 (Version 2)
Quarter: 2021Q1

REPORT INFORMATION
  Report Type: Spontaneous
  Country: CA (occurrence: CA)
  Receive Date: 20210125
  Receipt Date: 20210222
  Transmission Date: 20210419
  Serious: Yes (Death, Other)
  Sender: FDA-Public Use
  Company Number: CA-GILEAD-2021-0514142

PATIENT
  Age: 73 Year
  Sex: Female

DRUGS (2)
  1. AMBRISENTAN [Suspect]
     Active Substance: AMBRISENTAN
     Indication: PULMONARY ARTERIAL HYPERTENSION
     Dosage: UNK
     Route: 065
  2. ADCIRCA [Suspect]
     Active Substance: TADALAFIL
     Indication: PULMONARY ARTERIAL HYPERTENSION
     Dosage: 40 MG
     Route: 065
     Dates: start: 20170730

REACTIONS (5)
  - Blood cholesterol increased [Unknown]
  - Glaucoma [Unknown]
  - Death [Fatal]
  - Skin cancer [Unknown]
  - Hypertension [Unknown]

NARRATIVE: CASE EVENT DATE: 20210211
